FAERS Safety Report 15211533 (Version 1)
Quarter: 2018Q3

REPORT INFORMATION
  Report Type: Spontaneous
  Country: JP (occurrence: JP)
  Receive Date: 20180729
  Receipt Date: 20180729
  Transmission Date: 20181010
  Serious: Yes (Life-Threatening, Other)
  Sender: FDA-Public Use
  Company Number: JP-SA-2018SA203665

PATIENT
  Age: 66 Year
  Sex: Male

DRUGS (6)
  1. CISPLATIN. [Suspect]
     Active Substance: CISPLATIN
     Dosage: FIRST CYCLE
  2. DOCETAXEL. [Suspect]
     Active Substance: DOCETAXEL
     Indication: OESOPHAGEAL CANCER METASTATIC
     Dosage: SECOND CYCLE
  3. FLUOROURACIL. [Suspect]
     Active Substance: FLUOROURACIL
     Dosage: FIRST CYCLE
  4. CISPLATIN. [Suspect]
     Active Substance: CISPLATIN
     Indication: OESOPHAGEAL CANCER METASTATIC
     Dosage: SECOND CYCLE
  5. FLUOROURACIL. [Suspect]
     Active Substance: FLUOROURACIL
     Indication: OESOPHAGEAL CANCER METASTATIC
     Dosage: SECOND CYCLE
  6. DOCETAXEL. [Suspect]
     Active Substance: DOCETAXEL
     Dosage: FIRST CYCLE

REACTIONS (7)
  - Leukopenia [Unknown]
  - Decreased appetite [Unknown]
  - Febrile neutropenia [Unknown]
  - Mucous membrane disorder [Unknown]
  - Oesophagitis [Unknown]
  - Thrombocytopenia [Unknown]
  - Neutropenia [Unknown]
